FAERS Safety Report 9013026 (Version 1)
Quarter: 2013Q1

REPORT INFORMATION
  Report Type: Spontaneous
  Country: US (occurrence: US)
  Receive Date: 20130114
  Receipt Date: 20130114
  Transmission Date: 20140127
  Serious: Yes (Other)
  Sender: FDA-Public Use
  Company Number: US-009507513-1301USA003590

PATIENT
  Age: 40 Year
  Sex: Female

DRUGS (1)
  1. SINGULAIR [Suspect]
     Indication: ABDOMINAL PAIN UPPER
     Dosage: 10 MG, UNKNOWN
     Route: 048

REACTIONS (4)
  - Lethargy [Unknown]
  - Headache [Unknown]
  - Feeling abnormal [Unknown]
  - Abdominal pain upper [Unknown]
